FAERS Safety Report 6986708-2 (Version None)
Quarter: 2010Q3

REPORT INFORMATION
  Report Type: 
  Country: None (occurrence: None)
  Receive Date: 20100915
  Receipt Date: 20090728
  Transmission Date: 20110219
  Serious: No
  Sender: FDA-Public Use
  Company Number: US-WYE-H10348009

PATIENT
  Sex: Female
  Weight: 72.64 kg

DRUGS (4)
  1. PRISTIQ [Suspect]
     Indication: DEPRESSION
     Route: 048
     Dates: start: 20090714, end: 20090701
  2. PRISTIQ [Suspect]
     Route: 048
     Dates: start: 20090701
  3. METFORMIN [Concomitant]
  4. ESTROGEN NOS [Concomitant]

REACTIONS (2)
  - HEADACHE [None]
  - MIDDLE INSOMNIA [None]
